FAERS Safety Report 8901200 (Version 1)
Quarter: 2012Q4

REPORT INFORMATION
  Report Type: 
  Country: AU (occurrence: AU)
  Receive Date: 20121109
  Receipt Date: 20121109
  Transmission Date: 20130627
  Serious: Yes (Other)
  Sender: FDA-Public Use
  Company Number: AU-ROCHE-CID000000002220994

PATIENT
  Sex: Male

DRUGS (6)
  1. XELODA [Suspect]
     Indication: OESOPHAGEAL CANCER METASTATIC
     Route: 065
  2. IRINOTECAN [Concomitant]
  3. CISPLATIN [Concomitant]
  4. EPIRUBICIN [Concomitant]
  5. FLUOROURACIL [Concomitant]
  6. DOCETAXEL [Concomitant]

REACTIONS (1)
  - Oesophageal cancer metastatic [Unknown]
